FAERS Safety Report 12253354 (Version 1)
Quarter: 2016Q2

REPORT INFORMATION
  Report Type: Spontaneous
  Country: FR (occurrence: FR)
  Receive Date: 20160411
  Receipt Date: 20160411
  Transmission Date: 20160815
  Serious: Yes (Other)
  Sender: FDA-Public Use
  Company Number: FR-PFIZER INC-2016203571

PATIENT
  Age: 36 Year
  Sex: Male

DRUGS (6)
  1. RHINADVIL [Suspect]
     Active Substance: IBUPROFEN\PSEUDOEPHEDRINE HYDROCHLORIDE
     Indication: RHINITIS
     Dosage: UNK
     Route: 048
     Dates: start: 200808
  2. FORLAX [Suspect]
     Active Substance: POLYETHYLENE GLYCOL 4000
     Indication: HAEMORRHOIDS
     Dosage: UNK
     Route: 048
     Dates: start: 200808
  3. CEFPODOXIME PROXETIL. [Suspect]
     Active Substance: CEFPODOXIME PROXETIL
     Indication: RHINITIS
     Dosage: UNK
     Route: 048
     Dates: start: 200808
  4. PROCTOLOG [Suspect]
     Active Substance: TRIMEBUTINE
     Indication: HAEMORRHOIDS
     Dosage: UNK
     Route: 054
     Dates: start: 200808
  5. MAXILASE [Suspect]
     Active Substance: PANCRELIPASE
     Indication: RHINITIS
     Dosage: UNK
     Route: 048
     Dates: start: 200808
  6. DAFLON [Suspect]
     Active Substance: DIOSMIN\HESPERIDIN
     Indication: HAEMORRHOIDS
     Dosage: UNK
     Route: 048
     Dates: start: 200808

REACTIONS (2)
  - Toxic skin eruption [Recovered/Resolved]
  - Dermatitis allergic [Recovered/Resolved]

NARRATIVE: CASE EVENT DATE: 200808
